FAERS Safety Report 19217463 (Version 2)
Quarter: 2021Q2

REPORT INFORMATION
  Report Type: Spontaneous
  Country: US (occurrence: US)
  Receive Date: 20210505
  Receipt Date: 20210601
  Transmission Date: 20210717
  Serious: Yes (Other)
  Sender: FDA-Public Use
  Company Number: US-PFIZER INC-2021450257

PATIENT
  Age: 39 Year
  Sex: Female

DRUGS (1)
  1. METOPROLOL TARTRATE. [Suspect]
     Active Substance: METOPROLOL TARTRATE
     Indication: HEART RATE ABNORMAL
     Dosage: 25 MG, 2X/DAY

REACTIONS (4)
  - Suicidal ideation [Unknown]
  - Depression [Unknown]
  - Off label use [Unknown]
  - Intrusive thoughts [Unknown]
